FAERS Safety Report 22535483 (Version 1)
Quarter: 2023Q2

REPORT INFORMATION
  Report Type: Spontaneous
  Country: AR (occurrence: AR)
  Receive Date: 20230608
  Receipt Date: 20230608
  Transmission Date: 20230722
  Serious: Yes (Other)
  Sender: FDA-Public Use
  Company Number: AR-GLAXOSMITHKLINE-AR2023AMR077685

PATIENT

DRUGS (1)
  1. NUCALA [Suspect]
     Active Substance: MEPOLIZUMAB
     Indication: Asthma
     Dosage: 100 MG
     Dates: start: 20220303, end: 202301

REACTIONS (2)
  - Pharyngeal operation [Unknown]
  - Nasal neoplasm [Not Recovered/Not Resolved]

NARRATIVE: CASE EVENT DATE: 20230501
